FAERS Safety Report 6582961-8 (Version None)
Quarter: 2010Q1

REPORT INFORMATION
  Report Type: 
  Country: None (occurrence: None)
  Receive Date: 20100216
  Receipt Date: 20100129
  Transmission Date: 20100710
  Serious: Yes (Death, Hospitalization)
  Sender: FDA-Public Use
  Company Number: US-ROCHE-529377

PATIENT
  Sex: Female

DRUGS (6)
  1. BEVACIZUMAB [Suspect]
     Dosage: 15 MG, Q3W
     Route: 042
     Dates: start: 20060831
  2. GEMCITABINE [Suspect]
     Dosage: 1250 MG/M2, UNK
     Route: 065
     Dates: start: 20060831
  3. REGLAN [Concomitant]
  4. REGLAN [Concomitant]
  5. ZOFRAN [Concomitant]
  6. ZOFRAN [Concomitant]

REACTIONS (1)
  - DISEASE PROGRESSION [None]
